FAERS Safety Report 11948515 (Version 2)
Quarter: 2016Q2

REPORT INFORMATION
  Report Type: Report from Study
  Country: JP (occurrence: JP)
  Receive Date: 20160125
  Receipt Date: 20160404
  Transmission Date: 20160815
  Serious: Yes (Death, Disabling, Other)
  Sender: FDA-Public Use
  Company Number: PHHY2014JP177915

PATIENT
  Age: 62 Year
  Sex: Female
  Weight: 50 kg

DRUGS (11)
  1. MAGLAX [Concomitant]
     Active Substance: MAGNESIUM OXIDE
     Indication: CONSTIPATION
     Dosage: 250 MG, QID
     Route: 048
     Dates: start: 20120609
  2. BERIZYM [Concomitant]
     Active Substance: CELLULASE\DIASTASE\LIPASE
     Indication: ABDOMINAL DISCOMFORT
     Dosage: 1 G, TID
     Route: 048
     Dates: start: 20121004
  3. PAZOPANIB [Suspect]
     Active Substance: PAZOPANIB
     Dosage: 400 MG, QD
     Route: 048
     Dates: start: 20140115, end: 20140207
  4. VESICARE [Concomitant]
     Active Substance: SOLIFENACIN SUCCINATE
     Indication: DYSURIA
     Dosage: 5 MG, QD
     Route: 048
     Dates: start: 20121129, end: 20131113
  5. GASMOTIN [Concomitant]
     Active Substance: MOSAPRIDE CITRATE
     Indication: ABDOMINAL DISTENSION
     Dosage: 5 MG, TID
     Route: 048
     Dates: start: 20121004
  6. WARFARIN [Concomitant]
     Active Substance: WARFARIN
     Indication: VENA CAVA THROMBOSIS
     Dosage: 2 MG, QD
     Route: 048
     Dates: start: 20121024, end: 20131112
  7. PAZOPANIB [Suspect]
     Active Substance: PAZOPANIB
     Dosage: 600 MG, QD
     Route: 048
     Dates: start: 20130220, end: 20130807
  8. PAZOPANIB [Suspect]
     Active Substance: PAZOPANIB
     Indication: LEIOMYOSARCOMA
     Dosage: 800 MG, QD
     Route: 048
     Dates: start: 20130130, end: 20130209
  9. PAZOPANIB [Suspect]
     Active Substance: PAZOPANIB
     Dosage: 400 MG, QD
     Route: 048
     Dates: start: 20130814, end: 20131113
  10. WARFARIN [Concomitant]
     Active Substance: WARFARIN
     Dosage: 2 MG, QD
     Route: 048
     Dates: start: 20131218
  11. DEPAS [Concomitant]
     Active Substance: ETIZOLAM
     Indication: DEPRESSIVE SYMPTOM
     Dosage: 0.5 MG, TID
     Route: 048
     Dates: start: 20120628

REACTIONS (10)
  - Hypertension [Recovering/Resolving]
  - Malaise [Recovered/Resolved]
  - Hypoaesthesia [Unknown]
  - Leiomyosarcoma [Fatal]
  - Cerebral haemorrhage [Recovered/Resolved with Sequelae]
  - Neutrophil count decreased [Recovering/Resolving]
  - General physical health deterioration [Unknown]
  - Gastritis [Not Recovered/Not Resolved]
  - Haematuria [Recovered/Resolved]
  - Dysgeusia [Recovered/Resolved]

NARRATIVE: CASE EVENT DATE: 20130209
